FAERS Safety Report 6432264-7 (Version None)
Quarter: 2009Q4

REPORT INFORMATION
  Report Type: 
  Country: None (occurrence: None)
  Receive Date: 20091109
  Receipt Date: 20091028
  Transmission Date: 20100525
  Serious: Yes (Other)
  Sender: FDA-Public Use
  Company Number: PHHY2009AR47299

PATIENT
  Sex: Male

DRUGS (2)
  1. RASILEZ [Suspect]
     Indication: HYPERTENSION
     Dosage: 1 TABLET (150 MG) DAILY
     Route: 048
     Dates: start: 20090801
  2. RASILEZ [Suspect]
     Dosage: 300 MG DAILY
     Route: 048
     Dates: end: 20090901

REACTIONS (2)
  - FEELING HOT [None]
  - HYPERTENSION [None]
